FAERS Safety Report 8777490 (Version 2)
Quarter: 2012Q4

REPORT INFORMATION
  Report Type: 
  Country: US (occurrence: US)
  Receive Date: 20120910
  Receipt Date: 20121009
  Transmission Date: 20130627
  Serious: Yes (Other)
  Sender: FDA-Public Use
  Company Number: US-BAYER-2012-090706

PATIENT
  Age: 19 Year
  Sex: Female

DRUGS (3)
  1. MIRENA [Suspect]
     Indication: CONTRACEPTION
     Dosage: 20 mcg/24hr, CONT
     Route: 015
     Dates: start: 20120823, end: 20120829
  2. CYTOTEC [Concomitant]
     Indication: UTERINE CERVIX STENOSIS
     Route: 048
  3. DEPO [Concomitant]

REACTIONS (2)
  - Device dislocation [Recovered/Resolved]
  - Device difficult to use [Recovered/Resolved]
